FAERS Safety Report 8724979 (Version 2)
Quarter: 2015Q2

REPORT INFORMATION
  Report Type: Report from Study
  Country: US (occurrence: US)
  Receive Date: 20120815
  Receipt Date: 20150626
  Transmission Date: 20150821
  Serious: Yes (Other)
  Sender: FDA-Public Use
  Company Number: US-ROCHE-1100959

PATIENT
  Age: 47 Year
  Sex: Male

DRUGS (10)
  1. DRAMAMINE [Concomitant]
     Active Substance: DIMENHYDRINATE
     Route: 065
  2. TRIDIL [Concomitant]
     Active Substance: NITROGLYCERIN
     Route: 065
  3. MORPHINE SULFATE. [Concomitant]
     Active Substance: MORPHINE SULFATE
     Route: 065
  4. HEPARIN [Concomitant]
     Active Substance: HEPARIN SODIUM
     Route: 065
  5. PROZAC [Concomitant]
     Active Substance: FLUOXETINE HYDROCHLORIDE
     Route: 048
  6. ACTIVASE [Suspect]
     Active Substance: ALTEPLASE
     Indication: ACUTE MYOCARDIAL INFARCTION
     Route: 042
  7. LIDOCAINE. [Concomitant]
     Active Substance: LIDOCAINE
     Route: 065
  8. ACTIVASE [Suspect]
     Active Substance: ALTEPLASE
     Route: 042
  9. ACTIVASE [Suspect]
     Active Substance: ALTEPLASE
     Route: 042
  10. SOLU-CORTEF [Concomitant]
     Active Substance: HYDROCORTISONE SODIUM SUCCINATE
     Route: 065

REACTIONS (7)
  - Panic attack [Unknown]
  - Sinusitis [Unknown]
  - Vomiting [Unknown]
  - Nausea [Unknown]
  - Productive cough [Unknown]
  - Chest discomfort [Unknown]
  - Pain [Recovered/Resolved]
